FAERS Safety Report 9818674 (Version 1)
Quarter: 2014Q1

REPORT INFORMATION
  Report Type: Spontaneous
  Country: GB (occurrence: GB)
  Receive Date: 20140115
  Receipt Date: 20140115
  Transmission Date: 20141002
  Serious: Yes (Hospitalization)
  Sender: FDA-Public Use
  Company Number: GB-PFIZER INC-2014007731

PATIENT
  Age: 42 Year
  Sex: Female

DRUGS (6)
  1. SULFASALAZINE [Suspect]
     Indication: RHEUMATOID ARTHRITIS
     Dosage: 2.5G DAILY (1.5G IN THE MORNING AND 1G IN THE EVENING)
     Route: 048
  2. METHOTREXATE SODIUM [Suspect]
     Indication: RHEUMATOID ARTHRITIS
     Dosage: 20 MG, ONCE PER WEEK (RECENTLY INCREASED)
     Route: 048
  3. GABAPENTIN [Concomitant]
     Dosage: 300 MG, 3X/DAY
     Route: 048
  4. OMEPRAZOLE [Concomitant]
     Dosage: 20 MG, 1X/DAY
  5. AMITRIPTYLINE [Concomitant]
     Dosage: 150 MG, ONCE DAILY, AT NIGHT.
  6. CO-CODAMOL [Concomitant]
     Dosage: 2 DF (30MG/500MG), DAILY

REACTIONS (1)
  - Pulmonary fibrosis [Not Recovered/Not Resolved]
